FAERS Safety Report 5919265-X (Version None)
Quarter: 2008Q4

REPORT INFORMATION
  Report Type: 
  Country: None (occurrence: None)
  Receive Date: 20081015
  Receipt Date: 20081006
  Transmission Date: 20090506
  Serious: Yes (Hospitalization)
  Sender: FDA-Public Use
  Company Number: PHHY2008FR22691

PATIENT
  Sex: Female
  Weight: 46 kg

DRUGS (6)
  1. ACLASTA [Suspect]
     Indication: OSTEOPOROSIS
     Dosage: UNK
     Route: 042
     Dates: start: 20080901
  2. FLUOXETINE [Suspect]
     Indication: DEPRESSION
     Dosage: 20 MG
     Dates: start: 19950101, end: 20080905
  3. SOLUPRED [Concomitant]
     Indication: CHRONIC OBSTRUCTIVE PULMONARY DISEASE
     Dosage: 5 MG
     Dates: start: 20080101
  4. FIXICAL [Concomitant]
     Indication: OSTEOPOROSIS
     Dosage: 1 G
     Dates: start: 20060101
  5. LIPANTHYL [Concomitant]
     Indication: HYPERLIPIDAEMIA
     Dosage: 145 MG/DAY
  6. FORADIL [Concomitant]
     Indication: CHRONIC OBSTRUCTIVE PULMONARY DISEASE
     Dosage: 12 UG, BID
     Dates: start: 20050101

REACTIONS (1)
  - HYPONATRAEMIA [None]
